FAERS Safety Report 21939713 (Version 1)
Quarter: 2023Q1

REPORT INFORMATION
  Report Type: Spontaneous
  Country: TH (occurrence: TH)
  Receive Date: 20230201
  Receipt Date: 20230201
  Transmission Date: 20230418
  Serious: No
  Sender: FDA-Public Use
  Company Number: TH-EXELIXIS-CABO-22048479

PATIENT
  Age: 81 Year
  Sex: Female

DRUGS (1)
  1. CABOMETYX [Suspect]
     Active Substance: CABOZANTINIB S-MALATE
     Indication: Product used for unknown indication
     Dosage: 60 MG EOD X 1 WEEK THEN 60 MG PER DAY X 2 WEEKS
     Route: 048

REACTIONS (4)
  - Laryngospasm [Recovering/Resolving]
  - Laryngeal inflammation [Recovering/Resolving]
  - Dysphonia [Recovering/Resolving]
  - Inappropriate schedule of product administration [Unknown]
